FAERS Safety Report 19520750 (Version 3)
Quarter: 2021Q3

REPORT INFORMATION
  Report Type: Spontaneous
  Country: US (occurrence: US)
  Receive Date: 20210712
  Receipt Date: 20210811
  Transmission Date: 20211014
  Serious: Yes (Other)
  Sender: FDA-Public Use
  Company Number: US-PARATEK PHARMACEUTICALS, INC.-2021PTK00106

PATIENT
  Age: 32 Year
  Sex: Male
  Weight: 167.8 kg

DRUGS (21)
  1. UNSPECIFIED COVID?19 VACCINE [Concomitant]
     Dosage: UNK
     Dates: start: 202106
  2. ELAVIL [Concomitant]
     Active Substance: AMITRIPTYLINE HYDROCHLORIDE
     Dosage: 25 MG, 1X/DAY
     Route: 048
  3. ASTELIN 0.1% [Concomitant]
     Dosage: 137 ?G, 2X/DAY
     Route: 045
     Dates: start: 20210528
  4. CEFOXITIN [Suspect]
     Active Substance: CEFOXITIN SODIUM
     Indication: MYCOBACTERIUM ABSCESSUS INFECTION
     Dosage: 2 G, 3X/DAY
     Route: 042
     Dates: start: 2021, end: 2021
  5. SINGULAIR [Concomitant]
     Active Substance: MONTELUKAST SODIUM
     Dosage: 10 MG, 1X/DAY
     Route: 048
     Dates: start: 20210528
  6. PRILOSEC [Concomitant]
     Active Substance: OMEPRAZOLE MAGNESIUM
     Dosage: UNK MG
  7. MYCOSTATIN [Concomitant]
     Active Substance: NYSTATIN
     Dosage: APPLY TO AFFECTED AREA, 2X/DAY
     Route: 061
     Dates: start: 20210602
  8. ZESTRIL [Concomitant]
     Active Substance: LISINOPRIL
     Dosage: 40 MG, 1X/DAY
     Route: 048
  9. ADVAIR HFA [Concomitant]
     Active Substance: FLUTICASONE PROPIONATE\SALMETEROL XINAFOATE
     Dosage: 1 ACTUATIONS, 2X/DAY
     Dates: start: 20210330
  10. LORATADINE. [Concomitant]
     Active Substance: LORATADINE
     Dosage: 10 MG, 1X/DAY
     Route: 048
  11. AMIKACIN. [Suspect]
     Active Substance: AMIKACIN
     Indication: MYCOBACTERIUM ABSCESSUS INFECTION
     Dosage: 1000 MG, 3X/WEEK
     Route: 042
     Dates: start: 2021, end: 2021
  12. ALBUTEROL. [Concomitant]
     Active Substance: ALBUTEROL
     Dosage: 3 ML (2.5 MG) EVERY 6 HOURS AS NEEDED
  13. HYDRODIURIL [Concomitant]
     Active Substance: HYDROCHLOROTHIAZIDE
     Dosage: 12.5 MG, 1X/DAY
     Route: 048
     Dates: start: 20210504
  14. SIVEXTRO [Concomitant]
     Active Substance: TEDIZOLID PHOSPHATE
     Indication: MYCOBACTERIUM ABSCESSUS INFECTION
     Dosage: 200 MG, 1X/DAY
     Route: 048
     Dates: start: 20210512
  15. ALLEGRA [Concomitant]
     Active Substance: FEXOFENADINE HYDROCHLORIDE
     Dosage: 180 MG, 1X/DAY
     Dates: start: 20210403
  16. BREO ELLIPTA [Concomitant]
     Active Substance: FLUTICASONE FUROATE\VILANTEROL TRIFENATATE
     Dosage: 1 ACTUATIONS, 1X/DAY
  17. DEBROX [Concomitant]
     Active Substance: CARBAMIDE PEROXIDE
     Dosage: 4 GTT, 2X/DAY
     Route: 001
     Dates: start: 20210617, end: 20210622
  18. NUZYRA [Suspect]
     Active Substance: OMADACYCLINE
     Indication: MYCOBACTERIUM ABSCESSUS INFECTION
     Dosage: 300 MG, 1X/DAY
     Route: 048
     Dates: start: 20210522, end: 202107
  19. NUZYRA [Suspect]
     Active Substance: OMADACYCLINE
     Dosage: 300 MG, 1X/DAY
     Route: 048
     Dates: start: 20210704
  20. AMIKACIN. [Suspect]
     Active Substance: AMIKACIN
     Dosage: 1500 MG, 3X/WEEK
     Route: 042
     Dates: start: 20210705
  21. FLONASE [Concomitant]
     Active Substance: FLUTICASONE PROPIONATE
     Dosage: 2 ACTUATIONS, 2X/DAY IN EACH NOSE
     Route: 045
     Dates: start: 20210330

REACTIONS (3)
  - Transaminases increased [Recovering/Resolving]
  - Off label use [Not Recovered/Not Resolved]
  - Product dose omission issue [Recovered/Resolved]

NARRATIVE: CASE EVENT DATE: 2021
